FAERS Safety Report 21975556 (Version 1)
Quarter: 2023Q1

REPORT INFORMATION
  Report Type: Spontaneous
  Country: US (occurrence: US)
  Receive Date: 20230210
  Receipt Date: 20230210
  Transmission Date: 20230418
  Serious: Yes (Other)
  Sender: FDA-Public Use
  Company Number: US-BRISTOL-MYERS SQUIBB COMPANY-2023-018151

PATIENT
  Age: 64 Year
  Sex: Male

DRUGS (1)
  1. SPRYCEL [Suspect]
     Active Substance: DASATINIB
     Indication: Chronic myelomonocytic leukaemia
     Route: 048
     Dates: start: 201501

REACTIONS (4)
  - Pleural effusion [Unknown]
  - Rash [Unknown]
  - Peripheral swelling [Recovered/Resolved]
  - Aortic valve stenosis [Not Recovered/Not Resolved]

NARRATIVE: CASE EVENT DATE: 20220101
